FAERS Safety Report 8870360 (Version 1)
Quarter: 2012Q4

REPORT INFORMATION
  Report Type: Spontaneous
  Country: US (occurrence: None)
  Receive Date: 20121026
  Receipt Date: 20121026
  Transmission Date: 20130627
  Serious: Yes (Life-Threatening, Other)
  Sender: FDA-Public Use
  Company Number: None

PATIENT
  Sex: Male

DRUGS (2)
  1. MEPROLOL [Suspect]
     Indication: BLOOD PRESSURE HIGH
     Route: 002
     Dates: start: 20000118, end: 20121024
  2. MEPROLOL [Suspect]
     Indication: ARRHYTHMIA
     Route: 002
     Dates: start: 20000118, end: 20121024

REACTIONS (8)
  - Headache [None]
  - Muscle spasms [None]
  - Osteoarthritis [None]
  - Pruritus [None]
  - Depression [None]
  - Anhedonia [None]
  - Fatigue [None]
  - Back pain [None]
